FAERS Safety Report 13806615 (Version 1)
Quarter: 2017Q3

REPORT INFORMATION
  Report Type: Spontaneous
  Country: US (occurrence: US)
  Receive Date: 20170728
  Receipt Date: 20170728
  Transmission Date: 20171127
  Serious: Yes (Hospitalization)
  Sender: FDA-Public Use
  Company Number: US-PFIZER INC-2017322041

PATIENT
  Age: 75 Year
  Sex: Female
  Weight: 61.23 kg

DRUGS (9)
  1. XALKORI [Suspect]
     Active Substance: CRIZOTINIB
     Indication: LUNG NEOPLASM MALIGNANT
     Dosage: 500 MG, DAILY (TWO CAPSULES PER DAY)
     Route: 048
     Dates: start: 20170324, end: 20170702
  2. ASPIRIN. [Concomitant]
     Active Substance: ASPIRIN
     Indication: GASTROINTESTINAL DISORDER
     Dosage: 81 MG, 1X/DAY
     Route: 048
  3. RABEPRAZOLE SODIUM. [Concomitant]
     Active Substance: RABEPRAZOLE SODIUM
     Indication: GASTROOESOPHAGEAL REFLUX DISEASE
     Dosage: 20 MG, 1X/DAY
     Route: 048
  4. VITAMIN D3 [Concomitant]
     Active Substance: CHOLECALCIFEROL
     Dosage: 1000 IU, 1X/DAY
     Route: 048
  5. XALKORI [Suspect]
     Active Substance: CRIZOTINIB
     Indication: BREAST CANCER
  6. ATORVASTATIN [Concomitant]
     Active Substance: ATORVASTATIN
     Indication: BLOOD CHOLESTEROL ABNORMAL
     Dosage: 20 MG, 1X/DAY
     Route: 048
  7. ATENOLOL. [Concomitant]
     Active Substance: ATENOLOL
     Indication: BLOOD PRESSURE ABNORMAL
     Dosage: 50 MG, 1X/DAY
     Route: 048
  8. ALPRAZOLAM. [Concomitant]
     Active Substance: ALPRAZOLAM
     Indication: ANXIETY
     Dosage: 0.5 MG, 1X/DAY
     Route: 048
  9. LETROZOLE. [Concomitant]
     Active Substance: LETROZOLE
     Indication: BREAST CANCER
     Dosage: 2.5 MG, 1X/DAY
     Route: 048

REACTIONS (12)
  - Condition aggravated [Recovered/Resolved]
  - Constipation [Recovered/Resolved]
  - Gastrooesophageal reflux disease [Recovered/Resolved]
  - Dysgeusia [Recovered/Resolved]
  - Wheezing [Recovered/Resolved]
  - Diarrhoea [Recovered/Resolved]
  - Fatigue [Recovered/Resolved]
  - Throat irritation [Recovered/Resolved]
  - Aphonia [Recovered/Resolved]
  - Blood pressure fluctuation [Recovering/Resolving]
  - Pneumonia [Recovered/Resolved]
  - Heart rate decreased [Unknown]

NARRATIVE: CASE EVENT DATE: 20170525
